FAERS Safety Report 6535437-8 (Version None)
Quarter: 2009Q4

REPORT INFORMATION
  Report Type: 
  Country: None (occurrence: None)
  Receive Date: 20091228
  Receipt Date: 20090522
  Transmission Date: 20100525
  Serious: Yes (Other)
  Sender: FDA-Public Use
  Company Number: US-002951

PATIENT
  Age: 24 Year
  Sex: Female
  Weight: 82 kg

DRUGS (3)
  1. MULTIHANCE [Suspect]
     Indication: HEART DISEASE CONGENITAL
     Dosage: 20ML QD INTRAVENOUS
     Route: 042
     Dates: start: 20090522, end: 20090522
  2. MULTIHANCE [Suspect]
     Indication: NUCLEAR MAGNETIC RESONANCE IMAGING
     Dosage: 20ML QD INTRAVENOUS
     Route: 042
     Dates: start: 20090522, end: 20090522
  3. MULTIHANCE [Suspect]

REACTIONS (1)
  - ANAPHYLACTOID REACTION [None]
